FAERS Safety Report 5645414-7 (Version None)
Quarter: 2008Q1

REPORT INFORMATION
  Report Type: 
  Country: None (occurrence: None)
  Receive Date: 20080229
  Receipt Date: 20071126
  Transmission Date: 20080703
  Serious: No
  Sender: FDA-Public Use
  Company Number: US-BRISTOL-MYERS SQUIBB COMPANY-13993373

PATIENT
  Age: 65 Year
  Sex: Female
  Weight: 84 kg

DRUGS (5)
  1. TAXOL [Suspect]
     Indication: BREAST CANCER
     Route: 042
     Dates: start: 20071123, end: 20071123
  2. ASPIRIN [Concomitant]
  3. ACTONEL [Concomitant]
  4. MULTI-VITAMIN [Concomitant]
  5. FISH OIL [Concomitant]

REACTIONS (1)
  - PAIN IN EXTREMITY [None]
